FAERS Safety Report 4509621-9 (Version None)
Quarter: 2004Q4

REPORT INFORMATION
  Report Type: 
  Country: None (occurrence: None)
  Receive Date: 20041124
  Receipt Date: 20030807
  Transmission Date: 20050328
  Serious: No
  Sender: FDA-Public Use
  Company Number: US-BRISTOL-MYERS SQUIBB COMPANY-12350039

PATIENT
  Age: 56 Year
  Sex: Male
  Weight: 91 kg

DRUGS (4)
  1. AVALIDE [Suspect]
     Indication: HYPERTENSION
     Route: 048
     Dates: start: 20011001
  2. MULTI-VITAMIN [Concomitant]
  3. GLUCOSAMINE [Concomitant]
  4. METHYLSULFONYLMETHANE [Concomitant]

REACTIONS (2)
  - BLOOD PRESSURE INCREASED [None]
  - EYE PAIN [None]
